FAERS Safety Report 5236435-7 (Version None)
Quarter: 2007Q1

REPORT INFORMATION
  Report Type: 
  Country: None (occurrence: None)
  Receive Date: 20070208
  Receipt Date: 20070206
  Transmission Date: 20070707
  Serious: Yes (Hospitalization)
  Sender: FDA-Public Use
  Company Number: 220054

PATIENT
  Age: 62 Year
  Sex: Female
  Weight: 67 kg

DRUGS (8)
  1. BEVACIZUMAB OR PLACEBO(BEVACIZUMAB) PWDR + SOLVENT,INFUSION SOLN, 100M [Suspect]
     Indication: METASTATIC RENAL CELL CARCINOMA
     Dosage: Q2W, INTRAVENOUS
     Route: 042
     Dates: start: 20050616, end: 20050922
  2. INTERFERON ALFA-2A(INTERFERON ALFA-2A) [Suspect]
     Indication: METASTATIC RENAL CELL CARCINOMA
     Dosage: 9 MIU, 3/WEEK, SUCUTANEOUS
     Route: 058
     Dates: start: 20050616, end: 20050928
  3. DEXAMETHASONE TAB [Concomitant]
  4. ACETAMINOPHEN [Concomitant]
  5. DOMPERIDONE (DOMPERIDONE) [Concomitant]
  6. DELORAZEPAM (DELORAZEPAM) [Concomitant]
  7. OMEPRAZOLE [Concomitant]
  8. VERPAMIL (VERAPAMIL HYDROCHLORIDE) [Concomitant]

REACTIONS (1)
  - LEUKOENCEPHALOPATHY [None]
